FAERS Safety Report 13915810 (Version 1)
Quarter: 2017Q3

REPORT INFORMATION
  Report Type: Spontaneous
  Country: US (occurrence: US)
  Receive Date: 20170829
  Receipt Date: 20170829
  Transmission Date: 20171127
  Serious: Yes (Other)
  Sender: FDA-Public Use
  Company Number: US-IPSEN BIOPHARMACEUTICALS, INC.-2017-09536

PATIENT
  Sex: Male

DRUGS (14)
  1. COREG [Concomitant]
     Active Substance: CARVEDILOL
  2. ZOFRAN [Concomitant]
     Active Substance: ONDANSETRON HYDROCHLORIDE
  3. XELODA [Concomitant]
     Active Substance: CAPECITABINE
  4. ALDACTONE [Concomitant]
     Active Substance: SPIRONOLACTONE
  5. HEPARIN [Concomitant]
     Active Substance: HEPARIN SODIUM
  6. PRILOSEC [Concomitant]
     Active Substance: OMEPRAZOLE MAGNESIUM
  7. EMLA [Concomitant]
     Active Substance: LIDOCAINE\PRILOCAINE
  8. TEMODAR [Concomitant]
     Active Substance: TEMOZOLOMIDE
  9. XERMELO [Suspect]
     Active Substance: TELOTRISTAT ETHYL
     Indication: CARCINOID TUMOUR
     Route: 048
     Dates: start: 20170311
  10. SANDOSTATIN [Concomitant]
     Active Substance: OCTREOTIDE ACETATE
  11. LISINOPRIL. [Concomitant]
     Active Substance: LISINOPRIL
  12. ACETAMINOPHEN. [Concomitant]
     Active Substance: ACETAMINOPHEN
  13. SOMATULINE [Suspect]
     Active Substance: LANREOTIDE ACETATE
     Indication: PRODUCT USED FOR UNKNOWN INDICATION
     Dosage: NOT REPORTED
     Route: 065
  14. LOMOTIL [Concomitant]
     Active Substance: ATROPINE SULFATE\DIPHENOXYLATE HYDROCHLORIDE

REACTIONS (2)
  - Urticaria [Not Recovered/Not Resolved]
  - Radioembolisation [Not Recovered/Not Resolved]

NARRATIVE: CASE EVENT DATE: 2017
